FAERS Safety Report 9187127 (Version 1)
Quarter: 2013Q1

REPORT INFORMATION
  Report Type: Spontaneous
  Country: US (occurrence: US)
  Receive Date: 20130325
  Receipt Date: 20130325
  Transmission Date: 20140127
  Serious: Yes (Other)
  Sender: FDA-Public Use
  Company Number: US-JNJFOC-20130309522

PATIENT
  Sex: Male

DRUGS (2)
  1. INVEGA SUSTENNA [Suspect]
     Indication: PRODUCT USED FOR UNKNOWN INDICATION
     Route: 030
     Dates: start: 201301
  2. KLONOPIN [Concomitant]
     Indication: ANXIETY
     Route: 065

REACTIONS (2)
  - Dystonia [Recovered/Resolved]
  - Somnolence [Not Recovered/Not Resolved]
